FAERS Safety Report 18560804 (Version 2)
Quarter: 2021Q1

REPORT INFORMATION
  Report Type: Report from Study
  Country: PA (occurrence: PA)
  Receive Date: 20201130
  Receipt Date: 20210310
  Transmission Date: 20210419
  Serious: Yes (Other)
  Sender: FDA-Public Use
  Company Number: NVSC2020PA316910

PATIENT
  Sex: Female

DRUGS (1)
  1. GILENYA [Suspect]
     Active Substance: FINGOLIMOD HYDROCHLORIDE
     Indication: MULTIPLE SCLEROSIS
     Dosage: 0.5 MG, QD
     Route: 048
     Dates: start: 20191114

REACTIONS (5)
  - Multiple sclerosis relapse [Unknown]
  - Muscular weakness [Unknown]
  - Product dose omission issue [Unknown]
  - Hemiplegia [Unknown]
  - Gait disturbance [Unknown]
